FAERS Safety Report 5747430-3 (Version None)
Quarter: 2008Q2

REPORT INFORMATION
  Report Type: 
  Country: None (occurrence: None)
  Receive Date: 20080523
  Receipt Date: 20080519
  Transmission Date: 20081010
  Serious: Yes (Life-Threatening, Hospitalization)
  Sender: FDA-Public Use
  Company Number: GB-NOVOPROD-275369

PATIENT
  Age: 63 Year
  Sex: Female

DRUGS (1)
  1. KLIOVANCE [Suspect]
     Indication: HORMONE REPLACEMENT THERAPY
     Dosage: 1 MG, UNK
     Route: 048

REACTIONS (1)
  - MYOCARDIAL INFARCTION [None]
